FAERS Safety Report 11540078 (Version 1)
Quarter: 2015Q3

REPORT INFORMATION
  Report Type: Spontaneous
  Country: US (occurrence: None)
  Receive Date: 20150922
  Receipt Date: 20150922
  Transmission Date: 20151125
  Serious: Yes (Hospitalization)
  Sender: FDA-Public Use
  Company Number: None

PATIENT
  Age: 45 Year
  Sex: Female

DRUGS (6)
  1. ADRIAMYCIN [Concomitant]
     Active Substance: DOXORUBICIN HYDROCHLORIDE
  2. DECADRON [Concomitant]
     Active Substance: DEXAMETHASONE
  3. DOCETAXEL. [Suspect]
     Active Substance: DOCETAXEL
     Indication: INVASIVE DUCTAL BREAST CARCINOMA
     Route: 042
     Dates: start: 20150521, end: 20150521
  4. DOCETAXEL. [Concomitant]
     Active Substance: DOCETAXEL
  5. PROTONIX [Concomitant]
     Active Substance: PANTOPRAZOLE SODIUM
  6. DOCETAXEL. [Concomitant]
     Active Substance: DOCETAXEL

REACTIONS (3)
  - Intestinal ischaemia [None]
  - Small intestinal obstruction [None]
  - Septic shock [None]

NARRATIVE: CASE EVENT DATE: 20150529
